FAERS Safety Report 8026075-9 (Version None)
Quarter: 2012Q1

REPORT INFORMATION
  Report Type: 
  Country: None (occurrence: None)
  Receive Date: 20120105
  Receipt Date: 20110727
  Transmission Date: 20120608
  Serious: No
  Sender: FDA-Public Use
  Company Number: US-ABBOTT-11P-163-0841863-00

PATIENT
  Sex: Female
  Weight: 49.94 kg

DRUGS (3)
  1. OMEGA 369 [Suspect]
     Indication: PRODUCT USED FOR UNKNOWN INDICATION
  2. SYNTHROID [Suspect]
     Indication: THYROIDECTOMY
     Dates: start: 19780101
  3. SYNTHROID [Suspect]

REACTIONS (2)
  - HEADACHE [None]
  - BLOOD THYROID STIMULATING HORMONE INCREASED [None]
